FAERS Safety Report 6617719-4 (Version None)
Quarter: 2010Q1

REPORT INFORMATION
  Report Type: 
  Country: None (occurrence: None)
  Receive Date: 20100308
  Receipt Date: 20100223
  Transmission Date: 20100710
  Serious: Yes (Hospitalization, Other)
  Sender: FDA-Public Use
  Company Number: PHHY2010GB08852

PATIENT
  Sex: Male

DRUGS (2)
  1. CLOZARIL [Suspect]
     Indication: SCHIZOPHRENIA
     Dosage: UNK
     Dates: start: 19950503, end: 20100225
  2. CLOZARIL [Suspect]
     Dosage: 75 MG, UNK
     Dates: start: 20100226, end: 20100301

REACTIONS (6)
  - AGGRESSION [None]
  - AORTIC STENOSIS [None]
  - AORTIC VALVE REPLACEMENT [None]
  - ARRHYTHMIA [None]
  - CARDIAC PACEMAKER INSERTION [None]
  - HYPOTENSION [None]
